FAERS Safety Report 13911623 (Version 3)
Quarter: 2017Q4

REPORT INFORMATION
  Report Type: Spontaneous
  Country: DE (occurrence: DE)
  Receive Date: 20170828
  Receipt Date: 20171208
  Transmission Date: 20180320
  Serious: Yes (Other)
  Sender: FDA-Public Use
  Company Number: DE-AMGEN-DEUSP2017100550

PATIENT
  Age: 82 Year
  Sex: Female
  Weight: 70 kg

DRUGS (2)
  1. PROLIA [Suspect]
     Active Substance: DENOSUMAB
     Indication: OSTEOPOROSIS POSTMENOPAUSAL
     Dosage: 60 MG, Q6MO
     Route: 058
     Dates: start: 20170530
  2. DICLOFENAC [Concomitant]
     Active Substance: DICLOFENAC

REACTIONS (4)
  - Rash pruritic [Unknown]
  - Urticaria [Unknown]
  - Pigmentation disorder [Unknown]
  - Rash pustular [Unknown]

NARRATIVE: CASE EVENT DATE: 201706
